FAERS Safety Report 7955352-2 (Version None)
Quarter: 2011Q4

REPORT INFORMATION
  Report Type: 
  Country: None (occurrence: None)
  Receive Date: 20111202
  Receipt Date: 20111122
  Transmission Date: 20120403
  Serious: Yes (Hospitalization, Other)
  Sender: FDA-Public Use
  Company Number: US-ELI_LILLY_AND_COMPANY-US201003005082

PATIENT
  Sex: Female

DRUGS (8)
  1. HUMALOG [Suspect]
     Dosage: UNK, AS NEEDED
  2. HUMALOG [Suspect]
     Dosage: UNK, AS NEEDED
  3. LANTUS [Concomitant]
  4. HUMALOG [Suspect]
     Dosage: UNK, PRN
  5. HUMALOG [Suspect]
     Indication: DIABETES MELLITUS
     Dosage: UNK, AS NEEDED
  6. HUMALOG [Suspect]
     Dosage: UNK, AS NEEDED
  7. HUMALOG [Suspect]
     Dosage: UNK, PRN
  8. HUMALOG [Suspect]
     Dosage: UNK, AS NEEDED

REACTIONS (24)
  - HEART RATE IRREGULAR [None]
  - GLUCOSE URINE PRESENT [None]
  - DYSPNOEA [None]
  - INCORRECT DOSE ADMINISTERED [None]
  - BLADDER CANCER [None]
  - NEUROPATHY PERIPHERAL [None]
  - THINKING ABNORMAL [None]
  - CORONARY ARTERY BYPASS [None]
  - VASCULAR GRAFT OCCLUSION [None]
  - PALPITATIONS [None]
  - CHROMATOPSIA [None]
  - DRUG DOSE OMISSION [None]
  - BLINDNESS [None]
  - BLOOD GLUCOSE INCREASED [None]
  - DYSARTHRIA [None]
  - EYE HAEMORRHAGE [None]
  - BLOOD GLUCOSE DECREASED [None]
  - GLYCOSYLATED HAEMOGLOBIN INCREASED [None]
  - DIABETIC RETINOPATHY [None]
  - FATIGUE [None]
  - TREMOR [None]
  - MEMORY IMPAIRMENT [None]
  - OVERDOSE [None]
  - FEELING ABNORMAL [None]
